FAERS Safety Report 9400351 (Version 1)
Quarter: 2013Q3

REPORT INFORMATION
  Report Type: Spontaneous
  Country: DE (occurrence: DE)
  Receive Date: 20130710
  Receipt Date: 20130710
  Transmission Date: 20140515
  Serious: Yes (Death, Other)
  Sender: FDA-Public Use
  Company Number: PHHY2013DE072559

PATIENT
  Sex: 0

DRUGS (12)
  1. CICLOSPORIN [Suspect]
     Indication: PROPHYLAXIS AGAINST GRAFT VERSUS HOST DISEASE
  2. METHOTREXATE [Suspect]
     Indication: PROPHYLAXIS AGAINST GRAFT VERSUS HOST DISEASE
  3. FLUDARABINE [Suspect]
     Indication: ACUTE MYELOID LEUKAEMIA
  4. CYTARABINE [Suspect]
     Indication: ACUTE MYELOID LEUKAEMIA
  5. DAUNORUBICIN [Suspect]
     Indication: ACUTE MYELOID LEUKAEMIA
  6. G-CSF [Suspect]
     Indication: ACUTE MYELOID LEUKAEMIA
  7. AMSACRINE [Concomitant]
     Indication: SURGICAL PRECONDITIONING
  8. FLUDARABINE [Concomitant]
     Indication: SURGICAL PRECONDITIONING
  9. CYTARABINE [Concomitant]
     Indication: SURGICAL PRECONDITIONING
  10. CYCLOPHOSPHAMIDE [Concomitant]
  11. ANTITHYMOCYTE IMMUNOGLOBULIN [Concomitant]
  12. CIDOFOVIR [Concomitant]
     Indication: ADENOVIRUS INFECTION

REACTIONS (5)
  - Acute myeloid leukaemia recurrent [Fatal]
  - Acute graft versus host disease in skin [Recovered/Resolved]
  - Acute graft versus host disease in intestine [Recovered/Resolved]
  - Acute graft versus host disease in liver [Recovered/Resolved]
  - Drug ineffective [Unknown]
